FAERS Safety Report 5940548-1 (Version None)
Quarter: 2008Q4

REPORT INFORMATION
  Report Type: 
  Country: None (occurrence: None)
  Receive Date: 20081104
  Receipt Date: 20081030
  Transmission Date: 20090506
  Serious: Yes (Hospitalization)
  Sender: FDA-Public Use
  Company Number: ES-MERCK-0810ESP00022

PATIENT
  Age: 80 Year
  Sex: Male

DRUGS (6)
  1. INVANZ [Suspect]
     Indication: CHOLECYSTECTOMY
     Route: 042
     Dates: start: 20080927, end: 20081001
  2. INVANZ [Suspect]
     Indication: CHOLECYSTITIS
     Route: 042
     Dates: start: 20080927, end: 20081001
  3. HALOPERIDOL [Concomitant]
     Route: 065
  4. SEGURIL [Concomitant]
     Indication: HYPERTENSION
     Route: 065
  5. ENALAPRIL MALEATE [Concomitant]
     Indication: HYPERTENSION
     Route: 065
  6. OMNIC [Concomitant]
     Indication: PROSTATIC DISORDER
     Route: 048

REACTIONS (4)
  - AGITATION [None]
  - CONFUSIONAL STATE [None]
  - MYOCLONUS [None]
  - TREMOR [None]
